FAERS Safety Report 10465588 (Version 2)
Quarter: 2014Q3

REPORT INFORMATION
  Report Type: Spontaneous
  Country: AR (occurrence: AR)
  Receive Date: 20140919
  Receipt Date: 20140924
  Transmission Date: 20150326
  Serious: Yes (Death, Life-Threatening, Hospitalization, Other)
  Sender: FDA-Public Use
  Company Number: AR-BIOMARINAP-AR-2014-104133

PATIENT
  Age: 24 Month
  Sex: Female

DRUGS (4)
  1. CYCLOSPORIN [Concomitant]
     Active Substance: CYCLOSPORINE
     Indication: PROPHYLAXIS
  2. METHOTREXATE [Concomitant]
     Active Substance: METHOTREXATE
     Indication: PROPHYLAXIS
  3. MORPHINE [Concomitant]
     Active Substance: MORPHINE
     Indication: PRODUCT USED FOR UNKNOWN INDICATION
  4. ALDURAZYME [Suspect]
     Active Substance: LARONIDASE
     Indication: MUCOPOLYSACCHARIDOSIS I
     Dosage: 0.56 MG/KG, QW
     Route: 042
     Dates: start: 20140102, end: 20140515

REACTIONS (9)
  - Viral sepsis [Fatal]
  - Nervous system disorder [Unknown]
  - Gastrointestinal disorder [Not Recovered/Not Resolved]
  - Faeces discoloured [Unknown]
  - Respiratory disorder [Unknown]
  - Central nervous system lesion [Unknown]
  - Graft versus host disease [Not Recovered/Not Resolved]
  - Cardio-respiratory arrest [Unknown]
  - Adenovirus infection [Unknown]
